FAERS Safety Report 23329061 (Version 1)
Quarter: 2023Q4

REPORT INFORMATION
  Report Type: Report from Study
  Country: JP (occurrence: JP)
  Receive Date: 20231222
  Receipt Date: 20231222
  Transmission Date: 20240109
  Serious: Yes (Hospitalization, Other)
  Sender: FDA-Public Use
  Company Number: JP-KYOWAKIRIN-2020AKK019826

PATIENT
  Age: 87 Year
  Sex: Female

DRUGS (3)
  1. DARBEPOETIN ALFA [Suspect]
     Active Substance: DARBEPOETIN ALFA
     Indication: Myelodysplastic syndrome
     Dosage: 240 MICROGRAM, Q3WK
     Route: 058
     Dates: start: 20171221, end: 20211118
  2. DARBEPOETIN ALFA [Suspect]
     Active Substance: DARBEPOETIN ALFA
     Dosage: 240 MICROGRAM, Q2WK
     Route: 058
     Dates: start: 20170518, end: 20171130
  3. LACTULOSE [Concomitant]
     Active Substance: LACTULOSE
     Indication: Constipation
     Dosage: 24 G
     Route: 048
     Dates: start: 20211202, end: 20211228

REACTIONS (13)
  - Conjunctivitis [Recovering/Resolving]
  - Pyrexia [Recovering/Resolving]
  - Hypokalaemia [Recovered/Resolved]
  - Back pain [Not Recovered/Not Resolved]
  - Blood bilirubin increased [Recovered/Resolved]
  - Cystitis [Recovering/Resolving]
  - Hyperhidrosis [Recovering/Resolving]
  - Dehydration [Recovering/Resolving]
  - Pruritus [Recovering/Resolving]
  - Back pain [Recovering/Resolving]
  - Chest pain [Recovering/Resolving]
  - Pneumonia [Recovering/Resolving]
  - Urinary tract infection [Recovering/Resolving]

NARRATIVE: CASE EVENT DATE: 20170701
